FAERS Safety Report 5504035-7 (Version None)
Quarter: 2007Q4

REPORT INFORMATION
  Report Type: 
  Country: None (occurrence: None)
  Receive Date: 20071101
  Receipt Date: 20071023
  Transmission Date: 20080405
  Serious: Yes (Hospitalization)
  Sender: FDA-Public Use
  Company Number: US-JNJFOC-20071006569

PATIENT
  Age: 41 Year
  Sex: Male

DRUGS (7)
  1. IBUPROFEN [Suspect]
     Indication: MALAISE
     Route: 048
  2. IBUPROFEN [Suspect]
     Indication: CHILLS
     Dosage: FOR 3 OR 4 DOSES
     Route: 048
  3. ACETAMINOPHEN/DEXTROMETHORPHAN/PSEUDOEPHEDRINE [Concomitant]
  4. TRIMETHOBENZAMIDE [Concomitant]
     Route: 030
  5. TRIMETHOPRIM + SULFAMETHOXAZOLE [Concomitant]
  6. HYCOSAMINE [Concomitant]
     Indication: ABDOMINAL PAIN
     Dosage: AS NEEDED
  7. PROCHLORPERAZINE [Concomitant]
     Indication: NAUSEA

REACTIONS (3)
  - GLOMERULONEPHRITIS MINIMAL LESION [None]
  - RENAL TUBULAR NECROSIS [None]
  - THROMBOTIC MICROANGIOPATHY [None]
